FAERS Safety Report 8821796 (Version 1)
Quarter: 2012Q4

REPORT INFORMATION
  Report Type: 
  Country: DE (occurrence: DE)
  Receive Date: 20121002
  Receipt Date: 20121002
  Transmission Date: 20130627
  Serious: Yes (Hospitalization)
  Sender: FDA-Public Use
  Company Number: DE-VERTEX PHARMACEUTICAL INC.-2012-022128

PATIENT
  Sex: Female

DRUGS (3)
  1. INCIVO [Suspect]
     Indication: HEPATITIS C
     Dosage: Dosage Form: Tablet
     Route: 048
     Dates: start: 20120713
  2. RIBAVIRIN [Concomitant]
     Dates: start: 20120713
  3. PEG-INTERFERON [Concomitant]
     Dates: start: 20120613

REACTIONS (2)
  - Pyrexia [Unknown]
  - Rash [Unknown]
